FAERS Safety Report 20696100 (Version 1)
Quarter: 2022Q2

REPORT INFORMATION
  Report Type: Spontaneous
  Country: US (occurrence: None)
  Receive Date: 20220408
  Receipt Date: 20220408
  Transmission Date: 20220721
  Serious: Yes (Hospitalization)
  Sender: FDA-Public Use
  Company Number: None

PATIENT
  Age: 79 Year
  Sex: Male

DRUGS (1)
  1. IRON DEXTRAN [Suspect]
     Active Substance: IRON DEXTRAN
     Dates: start: 20220328

REACTIONS (5)
  - Chest discomfort [None]
  - Loss of consciousness [None]
  - Pulse absent [None]
  - Syncope [None]
  - Atrial fibrillation [None]

NARRATIVE: CASE EVENT DATE: 20220328
